FAERS Safety Report 15460701 (Version 1)
Quarter: 2018Q4

REPORT INFORMATION
  Report Type: Spontaneous
  Country: GB (occurrence: GB)
  Receive Date: 20181003
  Receipt Date: 20181003
  Transmission Date: 20190204
  Serious: Yes (Other)
  Sender: FDA-Public Use
  Company Number: PHHY2018GB110696

PATIENT
  Age: 74 Year
  Sex: Female

DRUGS (9)
  1. PACLITAXEL. [Suspect]
     Active Substance: PACLITAXEL
     Indication: METASTASES TO BONE
     Dosage: UNK
     Route: 065
  2. DENOSUMAB [Concomitant]
     Active Substance: DENOSUMAB
     Indication: BREAST CANCER
     Dosage: UNK
     Route: 065
  3. DENOSUMAB [Concomitant]
     Active Substance: DENOSUMAB
     Indication: METASTASES TO BONE
  4. PACLITAXEL. [Suspect]
     Active Substance: PACLITAXEL
     Indication: BREAST CANCER
  5. PACLITAXEL. [Suspect]
     Active Substance: PACLITAXEL
     Indication: METASTASES TO LUNG
  6. HERCEPTIN [Concomitant]
     Active Substance: TRASTUZUMAB
     Indication: METASTASES TO BONE
     Dosage: UNK
     Route: 065
  7. HERCEPTIN [Concomitant]
     Active Substance: TRASTUZUMAB
     Indication: METASTASES TO LUNG
  8. HERCEPTIN [Concomitant]
     Active Substance: TRASTUZUMAB
     Indication: BREAST CANCER
  9. DENOSUMAB [Concomitant]
     Active Substance: DENOSUMAB
     Indication: METASTASES TO LUNG

REACTIONS (1)
  - Cystoid macular oedema [Recovered/Resolved]
